FAERS Safety Report 13212813 (Version 1)
Quarter: 2017Q1

REPORT INFORMATION
  Report Type: Spontaneous
  Country: US (occurrence: US)
  Receive Date: 20170210
  Receipt Date: 20170210
  Transmission Date: 20170428
  Serious: No
  Sender: FDA-Public Use
  Company Number: US-RISING PHARMACEUTICALS, INC.-2016RIS00194

PATIENT
  Sex: Male

DRUGS (1)
  1. CIPROFLOXACIN. [Suspect]
     Active Substance: CIPROFLOXACIN
     Indication: EYE INFECTION
     Dosage: UNK

REACTIONS (3)
  - Eye irritation [Unknown]
  - Dysgeusia [Unknown]
  - Vision blurred [Unknown]
